FAERS Safety Report 5135083-7 (Version None)
Quarter: 2006Q4

REPORT INFORMATION
  Report Type: 
  Country: None (occurrence: None)
  Receive Date: 20060831
  Receipt Date: 20060606
  Transmission Date: 20070319
  Serious: No
  Sender: FDA-Public Use
  Company Number: 2006-BP-04480BP

PATIENT
  Age: 68 Year
  Sex: Female
  Weight: 111.1 kg

DRUGS (16)
  1. SPIRIVA [Suspect]
     Indication: ALVEOLITIS
     Dosage: 18 MCG (18 MCG,1 IN 1 D),IH
     Route: 055
     Dates: start: 20040101
  2. SPIRIVA [Suspect]
     Indication: BRONCHITIS
     Dosage: 18 MCG (18 MCG,1 IN 1 D),IH
     Route: 055
     Dates: start: 20040101
  3. SPIRIVA [Suspect]
     Indication: FIBROSIS
     Dosage: 18 MCG (18 MCG,1 IN 1 D),IH
     Route: 055
     Dates: start: 20040101
  4. SPIRIVA [Suspect]
     Indication: INTERSTITIAL LUNG DISEASE
     Dosage: 18 MCG (18 MCG,1 IN 1 D),IH
     Route: 055
     Dates: start: 20040101
  5. IMURAN [Concomitant]
  6. PREDNISONE TAB [Concomitant]
  7. FLOMAX [Concomitant]
  8. LISINOPRIL [Concomitant]
  9. LOVASTATIN [Concomitant]
  10. PROTONIX [Concomitant]
  11. FUROSEMIDE [Concomitant]
  12. LEXAPRO [Concomitant]
  13. KLOR-CON [Concomitant]
  14. ALBUTEROL [Concomitant]
  15. TEMAZEPAM [Concomitant]
  16. OXYGEN (OXYGEN) [Concomitant]

REACTIONS (2)
  - AGEUSIA [None]
  - DRUG LEVEL DECREASED [None]
